FAERS Safety Report 4864982-6 (Version None)
Quarter: 2005Q4

REPORT INFORMATION
  Report Type: 
  Country: None (occurrence: None)
  Receive Date: 20051223
  Receipt Date: 20051212
  Transmission Date: 20060501
  Serious: Yes (Other)
  Sender: FDA-Public Use
  Company Number: PHNR2005AU01709

PATIENT
  Age: 41 Year
  Sex: Female

DRUGS (14)
  1. ZOMETA [Suspect]
     Indication: BREAST CANCER FEMALE
     Dosage: 4 MG, Q, 4/52
     Dates: start: 20040501, end: 20050801
  2. HERCEPTIN [Concomitant]
     Dosage: WEEKLY
     Dates: start: 20040501, end: 20050401
  3. TAXOTERE [Concomitant]
     Dosage: WEEKLY
     Dates: start: 20040501, end: 20050101
  4. TAXOTERE [Concomitant]
     Dosage: Q, 3/52
     Dates: start: 20050601
  5. TAXOL [Concomitant]
     Dates: start: 20040501
  6. TAXOL [Concomitant]
     Dosage: WEEKLY
     Dates: start: 20050301, end: 20051024
  7. XELODA [Concomitant]
     Dosage: Q, 3/52
     Dates: start: 20050601
  8. DEXAMETHASONE [Concomitant]
     Dosage: 12 MG, DAY
     Dates: start: 20050119
  9. DEXAMETHASONE [Concomitant]
     Dosage: 8 MG, Q
  10. ACIMAX [Concomitant]
  11. LOSEC [Concomitant]
  12. DIABEX [Concomitant]
  13. KARVEA [Concomitant]
  14. GASTRO-STOP [Concomitant]

REACTIONS (7)
  - BONE DISORDER [None]
  - BONE SCAN ABNORMAL [None]
  - MALIGNANT NEOPLASM PROGRESSION [None]
  - METASTASES TO CENTRAL NERVOUS SYSTEM [None]
  - MUCOSAL ULCERATION [None]
  - OSTEONECROSIS [None]
  - PAIN IN JAW [None]
